FAERS Safety Report 9001116 (Version 1)
Quarter: 2013Q1

REPORT INFORMATION
  Report Type: Spontaneous
  Country: US (occurrence: US)
  Receive Date: 20130107
  Receipt Date: 20130107
  Transmission Date: 20140127
  Serious: No
  Sender: FDA-Public Use
  Company Number: US-009507513-1301USA002035

PATIENT
  Age: 58 Year
  Sex: Male
  Weight: 81.63 kg

DRUGS (12)
  1. PEGINTRON [Suspect]
     Indication: HEPATITIS C
     Dosage: 120 MICROGRAM, QW
     Route: 058
  2. VICTRELIS [Suspect]
     Indication: HEPATITIS C
     Dosage: 800 MG, TID
     Route: 048
  3. VITAMIN E [Concomitant]
     Dosage: 400 UNITS, UNK
     Route: 048
  4. OMEGA-3 MARINE TRIGLYCERIDES [Concomitant]
     Route: 048
  5. VITAMIN B (UNSPECIFIED) [Concomitant]
     Dosage: 50
  6. VITAMIN B COMPLEX [Concomitant]
     Route: 048
  7. ASCORBIC ACID [Concomitant]
     Route: 048
  8. SAW PALMETTO [Concomitant]
     Route: 048
  9. PROTEIN (UNSPECIFIED) [Concomitant]
     Route: 048
  10. LORTAB [Concomitant]
     Dosage: 5 UNK, UNK
     Route: 048
  11. XANAX [Concomitant]
  12. RIBAVIRIN [Suspect]
     Route: 048

REACTIONS (4)
  - Dysgeusia [Unknown]
  - Dyspnoea [Unknown]
  - Fatigue [Unknown]
  - Feeling abnormal [Unknown]
